FAERS Safety Report 7883176-3 (Version None)
Quarter: 2011Q4

REPORT INFORMATION
  Report Type: 
  Country: None (occurrence: None)
  Receive Date: 20111031
  Receipt Date: 20111018
  Transmission Date: 20120403
  Serious: Yes (Other)
  Sender: FDA-Public Use
  Company Number: ALK_01823_2011

PATIENT
  Sex: Male
  Weight: 92.0802 kg

DRUGS (5)
  1. VIVITROL [Suspect]
     Indication: ALCOHOLISM
     Dosage: (380 MG 1X/MONTH INTRAMUSCULAR)
     Route: 030
     Dates: start: 20110418, end: 20110721
  2. SEROQUEL [Concomitant]
  3. MIRAPEX [Concomitant]
  4. TRAMADOL HCL [Concomitant]
  5. KLONOPIN [Concomitant]

REACTIONS (1)
  - INJECTION SITE ABSCESS [None]
